FAERS Safety Report 20343879 (Version 2)
Quarter: 2022Q1

REPORT INFORMATION
  Report Type: Spontaneous
  Country: US (occurrence: US)
  Receive Date: 20220118
  Receipt Date: 20220221
  Transmission Date: 20220423
  Serious: Yes (Hospitalization, Other)
  Sender: FDA-Public Use
  Company Number: US-DENTSPLY-2022SCDP000005

PATIENT
  Age: 29 Year
  Sex: Female

DRUGS (6)
  1. LIDOCAINE [Suspect]
     Active Substance: LIDOCAINE
     Indication: Cancer pain
     Dosage: 1 MILLIGRAM/KILOGRAM/HOUR INFUSION (ON HOSPITAL DAY 17)
     Route: 042
  2. LIDOCAINE [Suspect]
     Active Substance: LIDOCAINE
     Dosage: 1.6 MILLIGRAM/KILOGRAM/HOUR INFUSION (TITRATED TO A MAXIMUMOF 1.6MG/KG/HOUR ON HOSPITAL DAY 17)
     Route: 042
  3. LIDOCAINE [Suspect]
     Active Substance: LIDOCAINE
     Dosage: 2 MILLIGRAM/KILOGRAM INFUSION (LOADING DOSE)
     Route: 042
  4. LIDOCAINE [Suspect]
     Active Substance: LIDOCAINE
     Dosage: 1 MILLIGRAM/KILOGRAM/HOUR INFUSION (A CONTINUOUS INFUSION)
     Route: 042
  5. DEXAMETHASONE [Suspect]
     Active Substance: DEXAMETHASONE
     Indication: Spinal cord compression
     Dosage: 10 MILLIGRAM PER 8 HOUR (ON HOSPITAL DAY 25, DEXAMETHASONE WAS INCREASED TO 10 MG IV Q8 HOURS)
     Route: 042
  6. DEXAMETHASONE [Suspect]
     Active Substance: DEXAMETHASONE
     Dosage: 10 MILLIGRAM PER 24 HOUR (EVERY MORNING WAS STARTED ON HOSPITAL DAY 20)
     Route: 042

REACTIONS (4)
  - Hoigne^s syndrome [None]
  - Delirium [None]
  - Anxiety [None]
  - Hypoaesthesia oral [None]
